FAERS Safety Report 10156083 (Version 4)
Quarter: 2014Q2

REPORT INFORMATION
  Report Type: Report from Study
  Country: CA (occurrence: CA)
  Receive Date: 20140506
  Receipt Date: 20140513
  Transmission Date: 20141212
  Serious: Yes (Other)
  Sender: FDA-Public Use
  Company Number: PHHY2014CA049140

PATIENT
  Age: 32 Year
  Sex: Female

DRUGS (4)
  1. GILENYA [Suspect]
     Indication: RELAPSING-REMITTING MULTIPLE SCLEROSIS
     Dosage: 0.5 MG, QD
     Route: 048
     Dates: start: 20140401
  2. AXERT [Suspect]
     Indication: MIGRAINE
     Dates: start: 20140430
  3. ESTROGEN [Concomitant]
  4. PROGESTERONE [Concomitant]

REACTIONS (7)
  - Swollen tongue [Unknown]
  - Menorrhagia [Unknown]
  - Muscle spasms [Unknown]
  - Nervousness [Unknown]
  - Migraine [Unknown]
  - Dyspnoea [Unknown]
  - Cough [Unknown]
